FAERS Safety Report 7944536-5 (Version None)
Quarter: 2011Q4

REPORT INFORMATION
  Report Type: 
  Country: None (occurrence: None)
  Receive Date: 20111114
  Receipt Date: 20110802
  Transmission Date: 20120403
  Serious: No
  Sender: FDA-Public Use
  Company Number: 1000022623

PATIENT
  Age: 72 Year
  Sex: Female

DRUGS (5)
  1. COREG (CARVEDILOL) (CARVEDILOL) [Concomitant]
  2. SAVELLA [Suspect]
     Indication: FIBROMYALGIA
     Dosage: 12.5 MG BID (12.5 MG, 2 IN 1 D), ORAL
     Route: 048
     Dates: start: 20110101, end: 20110101
  3. SAVELLA [Suspect]
     Indication: FIBROMYALGIA
     Dosage: 25 MG BID (25 MG, 2 IN 1 D), ORAL
     Route: 048
     Dates: start: 20110101, end: 20110101
  4. PREVACID (LANSOPRAZOLE) (LANSOPRAZOLE) [Concomitant]
  5. NORVAC (AMLODIPINE BESILATE) (AMLODIPINE BESILATE) [Concomitant]

REACTIONS (1)
  - NAUSEA [None]
